FAERS Safety Report 21576117 (Version 1)
Quarter: 2022Q4

REPORT INFORMATION
  Report Type: Other
  Country: PT (occurrence: PT)
  Receive Date: 20221110
  Receipt Date: 20221110
  Transmission Date: 20230113
  Serious: Yes (Other)
  Sender: FDA-Public Use
  Company Number: PT-DENTSPLY-2022SCDP000321

PATIENT
  Age: 40 Year
  Sex: Female
  Weight: 78 kg

DRUGS (1)
  1. LIDOCAINE [Suspect]
     Active Substance: LIDOCAINE
     Indication: Product used for unknown indication
     Dosage: 20 MG/ML LIDOCAINE SOLUTION FOR INJECTION (INJECTABLE SOLUTION)
     Route: 067
     Dates: start: 20221019, end: 20221019

REACTIONS (4)
  - Electric shock sensation [Recovered/Resolved]
  - Psychomotor hyperactivity [Recovered/Resolved]
  - Atrial fibrillation [Recovered/Resolved]
  - Tachycardia [Recovered/Resolved]

NARRATIVE: CASE EVENT DATE: 20221019
